FAERS Safety Report 8538902 (Version 5)
Quarter: 2012Q4

REPORT INFORMATION
  Report Type: 
  Country: US (occurrence: US)
  Receive Date: 20120501
  Receipt Date: 20121121
  Transmission Date: 20130627
  Serious: Yes (Hospitalization, Other)
  Sender: FDA-Public Use
  Company Number: US-009507513-1202USA02276

PATIENT

DRUGS (5)
  1. FOSAMAX [Suspect]
     Indication: OSTEOPOROSIS
     Dosage: 5 mg, UNK
     Route: 048
     Dates: start: 20000718, end: 20001211
  2. FOSAMAX [Suspect]
     Indication: OSTEOPENIA
     Dosage: 10 mg, UNK
     Route: 048
     Dates: start: 20010219
  3. FOSAMAX [Suspect]
     Dosage: 70 mg, UNK
     Route: 048
     Dates: start: 2003, end: 2008
  4. VITAMIN D (UNSPECIFIED) [Concomitant]
     Indication: OSTEOPOROSIS
     Dosage: 400 IU, UNK
  5. CALCIUM (UNSPECIFIED) [Concomitant]
     Indication: OSTEOPOROSIS

REACTIONS (26)
  - Breast cancer stage II [Unknown]
  - Osteonecrosis of jaw [Unknown]
  - Bone loss [Unknown]
  - Tooth infection [Unknown]
  - Tooth fracture [Unknown]
  - Periodontitis [Unknown]
  - Gingivitis [Unknown]
  - Cardiac murmur [Unknown]
  - Spinal column stenosis [Unknown]
  - Asthma [Unknown]
  - Hypertension [Unknown]
  - Uterine disorder [Unknown]
  - Bladder disorder [Unknown]
  - Hyperlipidaemia [Unknown]
  - Fatigue [Unknown]
  - Arrhythmia [Unknown]
  - Chronic obstructive pulmonary disease [Unknown]
  - Coronary artery disease [Unknown]
  - Inappropriate schedule of drug administration [Unknown]
  - Loose tooth [Unknown]
  - Jaw disorder [Recovered/Resolved]
  - Purulent discharge [Unknown]
  - Soft tissue haemorrhage [Unknown]
  - Tooth disorder [Unknown]
  - Gingival disorder [Unknown]
  - Upper respiratory tract infection [Unknown]
